FAERS Safety Report 7324309-7 (Version None)
Quarter: 2011Q1

REPORT INFORMATION
  Report Type: 
  Country: None (occurrence: None)
  Receive Date: 20110301
  Receipt Date: 20110221
  Transmission Date: 20110831
  Serious: Yes (Hospitalization)
  Sender: FDA-Public Use
  Company Number: NL-MEDIMMUNE-MEDI-0012729

PATIENT
  Sex: Female

DRUGS (2)
  1. SYNAGIS [Suspect]
     Route: 030
     Dates: start: 20110221, end: 20110221
  2. SYNAGIS [Suspect]
     Route: 030
     Dates: start: 20101014, end: 20101014

REACTIONS (5)
  - CEREBRAL INFARCTION [None]
  - VOMITING [None]
  - HYPOTENSION [None]
  - INFANTILE SPITTING UP [None]
  - DEHYDRATION [None]
